FAERS Safety Report 4827052-9 (Version None)
Quarter: 2005Q4

REPORT INFORMATION
  Report Type: 
  Country: None (occurrence: None)
  Receive Date: 20051014
  Receipt Date: 20050624
  Transmission Date: 20060501
  Serious: No
  Sender: FDA-Public Use
  Company Number: 2005SP000711

PATIENT
  Age: 49 Year
  Sex: Female
  Weight: 51.7101 kg

DRUGS (4)
  1. LUNESTA [Suspect]
     Indication: INSOMNIA
     Dosage: 2 MG; HS; ORAL
     Route: 048
     Dates: start: 20050507, end: 20050507
  2. PROGESTERONE [Concomitant]
  3. ESTROGENS CONJUGATED [Concomitant]
  4. EFFEXOR [Concomitant]

REACTIONS (4)
  - APHONIA [None]
  - DYSGEUSIA [None]
  - DYSPHONIA [None]
  - THROAT TIGHTNESS [None]
